FAERS Safety Report 17548015 (Version 3)
Quarter: 2020Q2

REPORT INFORMATION
  Report Type: Report from Study
  Country: None (occurrence: US)
  Receive Date: 20200316
  Receipt Date: 20200519
  Transmission Date: 20200713
  Serious: Yes (Hospitalization, Other)
  Sender: FDA-Public Use
  Company Number: US-ABBVIE-20K-163-3318436-00

PATIENT
  Age: 64 Year
  Sex: Male
  Weight: 59.02 kg

DRUGS (9)
  1. PREDNISONE. [Concomitant]
     Active Substance: PREDNISONE
     Indication: PRODUCT USED FOR UNKNOWN INDICATION
     Dosage: WEEK 1 TOOK 6 TABLET
     Dates: start: 20200213
  2. PREDNISONE. [Concomitant]
     Active Substance: PREDNISONE
     Dosage: WEEK 3 TOOK 4 TABLET
  3. PREDNISONE. [Concomitant]
     Active Substance: PREDNISONE
     Dosage: WEEK 5 TOOK 2 TABLET
  4. HUMIRA [Suspect]
     Active Substance: ADALIMUMAB
     Route: 058
     Dates: start: 20200408
  5. PREDNISONE. [Concomitant]
     Active Substance: PREDNISONE
     Dosage: WEEK 6 TOOK 1 TABLET
     Dates: end: 20200326
  6. PREDNISONE. [Concomitant]
     Active Substance: PREDNISONE
     Dosage: WEEK 4 TOOK 3 TABLET
  7. MYRBETRIQ [Concomitant]
     Active Substance: MIRABEGRON
     Indication: PRODUCT USED FOR UNKNOWN INDICATION
     Dates: start: 20200128
  8. HUMIRA [Suspect]
     Active Substance: ADALIMUMAB
     Indication: CROHN^S DISEASE
     Route: 058
     Dates: start: 20200304, end: 2020
  9. PREDNISONE. [Concomitant]
     Active Substance: PREDNISONE
     Dosage: WEEK 2 TOOK 5 TABLET

REACTIONS (10)
  - Anal fissure [Recovering/Resolving]
  - Chest discomfort [Recovering/Resolving]
  - Blister rupture [Not Recovered/Not Resolved]
  - Perirectal abscess [Unknown]
  - Oral blood blister [Not Recovered/Not Resolved]
  - Dysphonia [Not Recovered/Not Resolved]
  - Oral herpes [Recovering/Resolving]
  - Increased tendency to bruise [Not Recovered/Not Resolved]
  - Contusion [Not Recovered/Not Resolved]
  - Anal fissure haemorrhage [Recovering/Resolving]

NARRATIVE: CASE EVENT DATE: 2020
